FAERS Safety Report 21500708 (Version 13)
Quarter: 2023Q1

REPORT INFORMATION
  Report Type: Spontaneous
  Country: NO (occurrence: NO)
  Receive Date: 20221025
  Receipt Date: 20230330
  Transmission Date: 20230417
  Serious: Yes (Other)
  Sender: FDA-Public Use
  Company Number: NO-ROCHE-3204463

PATIENT
  Age: 66 Year
  Sex: Female

DRUGS (40)
  1. MABTHERA [Suspect]
     Active Substance: RITUXIMAB
     Indication: Richter^s syndrome
     Route: 065
     Dates: start: 20060701, end: 20061102
  2. MABTHERA [Suspect]
     Active Substance: RITUXIMAB
     Route: 065
     Dates: start: 20150907, end: 20161128
  3. MABTHERA [Suspect]
     Active Substance: RITUXIMAB
     Route: 065
     Dates: start: 20190701, end: 20191001
  4. MABTHERA [Suspect]
     Active Substance: RITUXIMAB
     Route: 065
     Dates: start: 20190701, end: 20191001
  5. MABTHERA [Suspect]
     Active Substance: RITUXIMAB
     Route: 065
     Dates: start: 20220622, end: 20220816
  6. MABTHERA [Suspect]
     Active Substance: RITUXIMAB
     Route: 065
     Dates: start: 20220622, end: 20220816
  7. MABTHERA [Suspect]
     Active Substance: RITUXIMAB
     Dosage: PFT-22010
     Route: 065
     Dates: start: 20060701, end: 20061102
  8. MABTHERA [Suspect]
     Active Substance: RITUXIMAB
     Route: 065
     Dates: start: 20150907, end: 20161128
  9. MABTHERA [Suspect]
     Active Substance: RITUXIMAB
     Route: 065
     Dates: start: 20220101, end: 20220512
  10. OBINUTUZUMAB [Suspect]
     Active Substance: OBINUTUZUMAB
     Indication: Richter^s syndrome
     Route: 042
     Dates: start: 20220830
  11. OBINUTUZUMAB [Suspect]
     Active Substance: OBINUTUZUMAB
     Route: 042
     Dates: start: 20220830
  12. POLATUZUMAB VEDOTIN [Suspect]
     Active Substance: POLATUZUMAB VEDOTIN
     Indication: Richter^s syndrome
     Route: 065
     Dates: start: 20220622, end: 20220816
  13. POLATUZUMAB VEDOTIN [Suspect]
     Active Substance: POLATUZUMAB VEDOTIN
     Route: 065
     Dates: start: 20220830, end: 20220913
  14. POLATUZUMAB VEDOTIN [Suspect]
     Active Substance: POLATUZUMAB VEDOTIN
     Route: 065
     Dates: start: 20220830, end: 20220913
  15. POLATUZUMAB VEDOTIN [Suspect]
     Active Substance: POLATUZUMAB VEDOTIN
     Route: 065
     Dates: start: 20220622, end: 20220816
  16. VENETOCLAX [Suspect]
     Active Substance: VENETOCLAX
     Indication: Richter^s syndrome
     Route: 065
     Dates: start: 20190701, end: 20191001
  17. VENETOCLAX [Suspect]
     Active Substance: VENETOCLAX
     Route: 065
     Dates: start: 20190701, end: 20191001
  18. FLUDARABINE [Suspect]
     Active Substance: FLUDARABINE PHOSPHATE
     Indication: Richter^s syndrome
     Route: 065
     Dates: start: 20060701, end: 20061102
  19. FLUDARABINE [Suspect]
     Active Substance: FLUDARABINE PHOSPHATE
     Indication: Chronic lymphocytic leukaemia transformation
     Route: 065
     Dates: start: 20060701, end: 20061102
  20. BENDAMUSTINE [Suspect]
     Active Substance: BENDAMUSTINE
     Indication: Richter^s syndrome
     Route: 065
     Dates: start: 20220622, end: 20220816
  21. BENDAMUSTINE [Suspect]
     Active Substance: BENDAMUSTINE
     Route: 065
     Dates: start: 20220830, end: 20220913
  22. BENDAMUSTINE [Suspect]
     Active Substance: BENDAMUSTINE
     Route: 065
     Dates: start: 20220830, end: 20220913
  23. BENDAMUSTINE [Suspect]
     Active Substance: BENDAMUSTINE
     Dosage: PFT-22120
     Route: 065
     Dates: start: 20220622, end: 20220816
  24. VINCRISTINE [Suspect]
     Active Substance: VINCRISTINE
     Indication: Richter^s syndrome
     Dosage: PDF-11210000
     Route: 065
     Dates: start: 20220101, end: 20220512
  25. VINCRISTINE [Suspect]
     Active Substance: VINCRISTINE
     Indication: Richter^s syndrome
     Route: 065
     Dates: start: 20220101, end: 20220512
  26. PREDNISOLONE [Suspect]
     Active Substance: PREDNISOLONE
     Indication: Richter^s syndrome
     Route: 065
     Dates: start: 20220101, end: 20220512
  27. PREDNISOLONE [Suspect]
     Active Substance: PREDNISOLONE
     Route: 065
     Dates: start: 20220101, end: 20220512
  28. IDELALISIB [Suspect]
     Active Substance: IDELALISIB
     Indication: Richter^s syndrome
     Route: 065
     Dates: start: 20150907, end: 20161128
  29. IDELALISIB [Suspect]
     Active Substance: IDELALISIB
     Route: 065
     Dates: start: 20150907, end: 20161128
  30. CYCLOPHOSPHAMIDE [Suspect]
     Active Substance: CYCLOPHOSPHAMIDE
     Indication: Richter^s syndrome
     Route: 065
     Dates: start: 20060701, end: 20061102
  31. CYCLOPHOSPHAMIDE [Suspect]
     Active Substance: CYCLOPHOSPHAMIDE
     Route: 065
     Dates: start: 20220101, end: 20220512
  32. OXALIPLATIN [Suspect]
     Active Substance: OXALIPLATIN
     Indication: Richter^s syndrome
     Route: 065
     Dates: start: 20220830
  33. IMBRUVICA [Suspect]
     Active Substance: IBRUTINIB
     Indication: Richter^s syndrome
     Route: 065
     Dates: start: 20161201, end: 20170401
  34. IMBRUVICA [Suspect]
     Active Substance: IBRUTINIB
     Route: 065
     Dates: start: 20161201, end: 20170401
  35. CHLORAMBUCIL [Suspect]
     Active Substance: CHLORAMBUCIL
     Indication: Richter^s syndrome
     Dosage: PDF-11213000
     Route: 065
     Dates: start: 20060404, end: 20060626
  36. CHLORAMBUCIL [Suspect]
     Active Substance: CHLORAMBUCIL
     Route: 065
     Dates: start: 20060404, end: 20060626
  37. GEMCITABINE [Suspect]
     Active Substance: GEMCITABINE
     Indication: Richter^s syndrome
     Route: 065
     Dates: start: 20220830
  38. GEMCITABINE [Suspect]
     Active Substance: GEMCITABINE
     Dosage: PFT-22120
     Route: 065
     Dates: start: 20220830
  39. DOXORUBICIN [Suspect]
     Active Substance: DOXORUBICIN
     Indication: Richter^s syndrome
     Route: 065
     Dates: start: 20220101, end: 20220512
  40. DOXORUBICIN [Suspect]
     Active Substance: DOXORUBICIN
     Dosage: PFT-22120
     Route: 065
     Dates: start: 20220101, end: 20220512

REACTIONS (7)
  - Neutropenic infection [Unknown]
  - Disease progression [Unknown]
  - Blood disorder [Unknown]
  - Blood lactate dehydrogenase increased [Unknown]
  - COVID-19 [Recovered/Resolved]
  - Off label use [Unknown]
  - Toxicity to various agents [Unknown]

NARRATIVE: CASE EVENT DATE: 20220914
